FAERS Safety Report 6445678-6 (Version None)
Quarter: 2009Q4

REPORT INFORMATION
  Report Type: 
  Country: None (occurrence: None)
  Receive Date: 20091118
  Receipt Date: 20091118
  Transmission Date: 20100525
  Serious: Yes (Hospitalization)
  Sender: FDA-Public Use
  Company Number: None

PATIENT
  Age: 51 Year
  Sex: Male
  Weight: 70.3075 kg

DRUGS (1)
  1. HYDROCODONE BITARTRATE + ACETAMINOPHEN [Suspect]
     Indication: CALCULUS URINARY
     Dosage: A PILL PER 6 HOURS
     Dates: start: 20091109, end: 20091110

REACTIONS (3)
  - HEADACHE [None]
  - MOVEMENT DISORDER [None]
  - NAUSEA [None]
